FAERS Safety Report 5393563-3 (Version None)
Quarter: 2007Q3

REPORT INFORMATION
  Report Type: 
  Country: None (occurrence: None)
  Receive Date: 20070723
  Receipt Date: 20060818
  Transmission Date: 20080115
  Serious: No
  Sender: FDA-Public Use
  Company Number: A0617287A

PATIENT
  Age: 65 Year
  Sex: Female
  Weight: 77.3 kg

DRUGS (2)
  1. AVANDIA [Suspect]
     Indication: DRUG USE FOR UNKNOWN INDICATION
     Dosage: 8MG PER DAY
     Route: 048
     Dates: start: 20060101
  2. BYETTA [Suspect]
     Dosage: 10MCG TWICE PER DAY
     Route: 058
     Dates: start: 20060101

REACTIONS (2)
  - DIZZINESS [None]
  - WEIGHT DECREASED [None]
